FAERS Safety Report 7434926-1 (Version None)
Quarter: 2011Q2

REPORT INFORMATION
  Report Type: 
  Country: None (occurrence: None)
  Receive Date: 20110425
  Receipt Date: 20110418
  Transmission Date: 20111010
  Serious: Yes (Death, Other)
  Sender: FDA-Public Use
  Company Number: ES-ROCHE-771809

PATIENT
  Sex: Female

DRUGS (2)
  1. BEVACIZUMAB [Suspect]
     Indication: BREAST CANCER
     Route: 042
  2. PACLITAXEL [Suspect]
     Indication: BREAST CANCER
     Dosage: OVER 1 H EVERY WEEK FOR 3 WEEKS ON DAYS 1, 8, AND 15 OF EACH 28-DAY CYCLE
     Route: 042

REACTIONS (11)
  - STOMATITIS [None]
  - NAUSEA [None]
  - VOMITING [None]
  - DIARRHOEA [None]
  - PERIPHERAL SENSORY NEUROPATHY [None]
  - ABDOMINAL PAIN [None]
  - BACK PAIN [None]
  - DEATH [None]
  - FATIGUE [None]
  - INFECTION [None]
  - HYPERTENSION [None]
